FAERS Safety Report 21614535 (Version 1)
Quarter: 2022Q4

REPORT INFORMATION
  Report Type: Spontaneous
  Country: US (occurrence: None)
  Receive Date: 20221117
  Receipt Date: 20221117
  Transmission Date: 20230113
  Serious: No
  Sender: FDA-Public Use
  Company Number: None

PATIENT
  Sex: Female
  Weight: 77.7 kg

DRUGS (1)
  1. EVUSHELD [Suspect]
     Active Substance: CILGAVIMAB\TIXAGEVIMAB
     Indication: Exposure to SARS-CoV-2
     Dosage: 6 ML ONCE INTRAMUSCULAR
     Route: 030
     Dates: start: 20221116, end: 20221116

REACTIONS (5)
  - Dizziness [None]
  - Unresponsive to stimuli [None]
  - Anxiety [None]
  - Crying [None]
  - Nausea [None]

NARRATIVE: CASE EVENT DATE: 20221116
